FAERS Safety Report 8130525-7 (Version None)
Quarter: 2012Q1

REPORT INFORMATION
  Report Type: 
  Country: None (occurrence: None)
  Receive Date: 20120210
  Receipt Date: 20111228
  Transmission Date: 20120608
  Serious: Yes (Other)
  Sender: FDA-Public Use
  Company Number: PHEH2011US05778

PATIENT
  Sex: Male

DRUGS (2)
  1. GLEEVEC [Suspect]
     Indication: CHRONIC MYELOID LEUKAEMIA
     Dosage: 400 MG,DAILY
     Route: 042
     Dates: start: 20110831
  2. GLEEVEC [Suspect]
     Dosage: 400 MG, DAILY
     Route: 048

REACTIONS (4)
  - MALAISE [None]
  - ABDOMINAL HERNIA [None]
  - WHITE BLOOD CELL COUNT ABNORMAL [None]
  - NAUSEA [None]
